FAERS Safety Report 9253678 (Version 1)
Quarter: 2013Q2

REPORT INFORMATION
  Report Type: Spontaneous
  Country: US (occurrence: US)
  Receive Date: 20130425
  Receipt Date: 20130425
  Transmission Date: 20140414
  Serious: No
  Sender: FDA-Public Use
  Company Number: US-009507513-1304USA013726

PATIENT
  Age: 17 Year
  Sex: Female
  Weight: 65.77 kg

DRUGS (1)
  1. IMPLANON [Suspect]
     Indication: CONTRACEPTION
     Dosage: UNK
     Dates: start: 201204

REACTIONS (2)
  - Irritability [Unknown]
  - Burning sensation [Unknown]
